FAERS Safety Report 11769406 (Version 1)
Quarter: 2015Q4

REPORT INFORMATION
  Report Type: Report from Study
  Country: AR (occurrence: AR)
  Receive Date: 20151123
  Receipt Date: 20151123
  Transmission Date: 20160304
  Serious: Yes (Death)
  Sender: FDA-Public Use
  Company Number: AR-EMD SERONO-8054391

PATIENT
  Age: 8 Month
  Sex: Male

DRUGS (1)
  1. SAIZEN [Suspect]
     Active Substance: SOMATROPIN
     Indication: GROWTH HORMONE DEFICIENCY
     Dates: start: 20150424, end: 20150910

REACTIONS (1)
  - Death [Fatal]

NARRATIVE: CASE EVENT DATE: 20151113
